FAERS Safety Report 18941171 (Version 1)
Quarter: 2021Q1

REPORT INFORMATION
  Report Type: Spontaneous
  Country: PT (occurrence: PT)
  Receive Date: 20210225
  Receipt Date: 20210225
  Transmission Date: 20210420
  Serious: Yes (Life-Threatening, Hospitalization)
  Sender: FDA-Public Use
  Company Number: PT-TEVA-2021-PT-1883116

PATIENT
  Age: 67 Year
  Sex: Male

DRUGS (12)
  1. FUROSEMIDE. [Concomitant]
     Active Substance: FUROSEMIDE
     Dosage: FAST
  2. RAMIPRIL. [Concomitant]
     Active Substance: RAMIPRIL
  3. TRANSTEC 35 UG/H [Concomitant]
     Dosage: 1/2 I THINK EVERY 3.5 DAYS
  4. PANTOPRAZOLE [Concomitant]
     Active Substance: PANTOPRAZOLE
  5. BISOPROLOL [Suspect]
     Active Substance: BISOPROLOL
     Indication: AORTIC VALVE INCOMPETENCE
     Dosage: 5 MILLIGRAM DAILY; 1 CP AT LUNCH
     Route: 048
     Dates: start: 20140213, end: 20210128
  6. METEX PEN [Concomitant]
     Active Substance: METHOTREXATE
     Dosage: 1 X WEEK (FRIDAY):UNIT DOSE:20MILLIGRAM
  7. FOLICIL [Concomitant]
     Active Substance: FOLIC ACID
     Dosage: COMPRESSED
  8. ZYLORIC [Concomitant]
     Active Substance: ALLOPURINOL
     Dosage: COMPRESSED
  9. SIMPONI [Concomitant]
     Active Substance: GOLIMUMAB
     Dosage: 1 X MONTH (ON THE 30TH):UNIT DOSE:50MILLIGRAM
  10. FOSAVANCE [Concomitant]
     Active Substance: ALENDRONATE SODIUM\CHOLECALCIFEROL
     Dosage: COMPRESSED
  11. SIMVASTATIN. [Concomitant]
     Active Substance: SIMVASTATIN
  12. LEPICORTINOLO [Concomitant]
     Active Substance: PREDNISOLONE
     Dosage: 5 MILLIGRAM DAILY; 5 MG FOR BREAKFAST:COMPRESSED

REACTIONS (2)
  - Bradycardia [Recovered/Resolved]
  - Atrioventricular block complete [Recovered/Resolved]

NARRATIVE: CASE EVENT DATE: 20210128
